FAERS Safety Report 25805280 (Version 1)
Quarter: 2025Q3

REPORT INFORMATION
  Report Type: Spontaneous
  Country: US (occurrence: US)
  Receive Date: 20250916
  Receipt Date: 20250916
  Transmission Date: 20251020
  Serious: Yes (Hospitalization)
  Sender: KARYOPHARM THERAPEUTICS
  Company Number: US-KARYOPHARM-2025KPT100659

PATIENT

DRUGS (4)
  1. SELINEXOR [Suspect]
     Active Substance: SELINEXOR
     Indication: Acute myeloid leukaemia
     Route: 048
     Dates: start: 20250730, end: 2025
  2. BORTEZOMIB [Concomitant]
     Active Substance: BORTEZOMIB
  3. EMEND [Concomitant]
     Active Substance: APREPITANT
  4. ZOLINZA [Concomitant]
     Active Substance: VORINOSTAT

REACTIONS (1)
  - Acute myeloid leukaemia [Unknown]

NARRATIVE: CASE EVENT DATE: 20250101
